FAERS Safety Report 7627576-5 (Version None)
Quarter: 2011Q3

REPORT INFORMATION
  Report Type: 
  Country: None (occurrence: None)
  Receive Date: 20110721
  Receipt Date: 20110713
  Transmission Date: 20111222
  Serious: Yes (Hospitalization, Other)
  Sender: FDA-Public Use
  Company Number: JP-GENZYME-RENA-1001259

PATIENT
  Age: 61 Year
  Sex: Male

DRUGS (1)
  1. RENAGEL [Suspect]
     Indication: HYPERPHOSPHATAEMIA

REACTIONS (6)
  - LARGE INTESTINE PERFORATION [None]
  - CONSTIPATION [None]
  - ASCITES [None]
  - DIVERTICULUM INTESTINAL [None]
  - HYPERTROPHY [None]
  - PAINFUL DEFAECATION [None]
